FAERS Safety Report 5594346-1 (Version None)
Quarter: 2008Q1

REPORT INFORMATION
  Report Type: 
  Country: None (occurrence: None)
  Receive Date: 20080117
  Receipt Date: 20080111
  Transmission Date: 20080703
  Serious: Yes (Hospitalization, Other)
  Sender: FDA-Public Use
  Company Number: US-BAYER-200717305NA

PATIENT
  Age: 39 Year
  Sex: Male
  Weight: 80 kg

DRUGS (25)
  1. CAMPATH [Suspect]
     Indication: ACUTE LYMPHOCYTIC LEUKAEMIA
     Route: 058
     Dates: start: 20071221, end: 20071231
  2. METHOTREXATE [Suspect]
     Indication: ACUTE LYMPHOCYTIC LEUKAEMIA
     Route: 042
     Dates: start: 20071221
  3. METHOTREXATE [Suspect]
     Route: 042
  4. VINCRISTINE [Suspect]
     Indication: ACUTE LYMPHOCYTIC LEUKAEMIA
     Route: 040
     Dates: start: 20071222
  5. ELSPAR [Suspect]
     Indication: ACUTE LYMPHOCYTIC LEUKAEMIA
     Route: 030
     Dates: start: 20071222
  6. DEXAMETHASONE TAB [Suspect]
     Indication: ACUTE LYMPHOCYTIC LEUKAEMIA
     Dosage: TOTAL DAILY DOSE: 12 MG
     Route: 048
     Dates: start: 20071221
  7. BACTRIM DS [Concomitant]
     Indication: INFECTION PROPHYLAXIS
     Route: 048
  8. FAMCICLOVIR [Concomitant]
     Indication: INFECTION PROPHYLAXIS
     Route: 048
  9. ALLOPURINOL [Concomitant]
     Indication: TUMOUR LYSIS SYNDROME
     Dosage: TOTAL DAILY DOSE: 300 MG
     Route: 048
     Dates: start: 20071201, end: 20080101
  10. SENNA S [Concomitant]
     Route: 048
  11. METHADONE HCL [Concomitant]
     Route: 048
  12. METHADONE HCL [Concomitant]
     Dosage: TOTAL DAILY DOSE: 45 MG
     Route: 048
  13. ONDANSETRON [Concomitant]
     Route: 048
     Dates: start: 20071231, end: 20071231
  14. BENADRYL [Concomitant]
     Route: 048
     Dates: start: 20071231, end: 20071231
  15. TYLENOL [Concomitant]
     Route: 048
     Dates: start: 20071231, end: 20071231
  16. DIFLUCAN [Concomitant]
     Route: 048
     Dates: start: 20071231
  17. VALTREX [Concomitant]
     Route: 048
  18. K-DUR 10 [Concomitant]
     Route: 048
  19. LANTUS [Concomitant]
     Dosage: TOTAL DAILY DOSE: 35 U
     Route: 058
  20. LANTUS [Concomitant]
     Dosage: TOTAL DAILY DOSE: 30 U
     Route: 058
  21. NOVOLOG [Concomitant]
     Dosage: TOTAL DAILY DOSE: 30 U
     Route: 058
  22. COMPAZINE [Concomitant]
     Route: 048
  23. PRILOSEC [Concomitant]
     Dosage: TOTAL DAILY DOSE: 20 MG
     Route: 048
  24. NOVOLIN R [Concomitant]
     Route: 041
  25. NOVOLIN R [Concomitant]
     Route: 058

REACTIONS (20)
  - ANOREXIA [None]
  - COORDINATION ABNORMAL [None]
  - DEHYDRATION [None]
  - DIZZINESS [None]
  - DRY SKIN [None]
  - FATIGUE [None]
  - HAEMOGLOBIN DECREASED [None]
  - HAEMOPTYSIS [None]
  - HYPERGLYCAEMIA [None]
  - HYPONATRAEMIA [None]
  - NEUTROPHIL COUNT DECREASED [None]
  - PAIN IN EXTREMITY [None]
  - PALMAR-PLANTAR ERYTHRODYSAESTHESIA SYNDROME [None]
  - PLATELET COUNT DECREASED [None]
  - PROCTALGIA [None]
  - PROTEIN TOTAL DECREASED [None]
  - SKIN EXFOLIATION [None]
  - SYNCOPE [None]
  - VISION BLURRED [None]
  - WHITE BLOOD CELL COUNT DECREASED [None]
